FAERS Safety Report 8207582-2 (Version None)
Quarter: 2012Q1

REPORT INFORMATION
  Report Type: 
  Country: None (occurrence: None)
  Receive Date: 20120313
  Receipt Date: 20120313
  Transmission Date: 20120608
  Serious: No
  Sender: FDA-Public Use
  Company Number: None

PATIENT
  Sex: Female

DRUGS (1)
  1. FORTEO [Suspect]
     Indication: OSTEOPOROSIS
     Dosage: FORTEO 600MCG DAILY SQ
     Route: 058
     Dates: start: 20110801, end: 20120201

REACTIONS (1)
  - PALPITATIONS [None]
